FAERS Safety Report 24725369 (Version 1)
Quarter: 2024Q4

REPORT INFORMATION
  Report Type: Spontaneous
  Country: US (occurrence: US)
  Receive Date: 20241212
  Receipt Date: 20241212
  Transmission Date: 20250115
  Serious: No
  Sender: ALVOGEN
  Company Number: None

PATIENT

DRUGS (2)
  1. LISDEXAMFETAMINE DIMESYLATE [Suspect]
     Active Substance: LISDEXAMFETAMINE DIMESYLATE
     Indication: Attention deficit hyperactivity disorder
     Dosage: FIRST PRESCRIBED IN SEPTEMBER 2023
  2. LISDEXAMFETAMINE DIMESYLATE [Suspect]
     Active Substance: LISDEXAMFETAMINE DIMESYLATE
     Indication: Attention deficit hyperactivity disorder
     Dosage: RETOOK
     Dates: start: 202407

REACTIONS (19)
  - Abdominal distension [Not Recovered/Not Resolved]
  - Loss of personal independence in daily activities [Unknown]
  - Impaired work ability [Unknown]
  - Impaired driving ability [Unknown]
  - Frequent bowel movements [Unknown]
  - Fatigue [Unknown]
  - Nervousness [Unknown]
  - Attention deficit hyperactivity disorder [Unknown]
  - Condition aggravated [Unknown]
  - Abdominal pain [Not Recovered/Not Resolved]
  - Gastrointestinal pain [Unknown]
  - Depressive symptom [Unknown]
  - Anxiety [Unknown]
  - Diarrhoea [Unknown]
  - Headache [Unknown]
  - Nausea [Unknown]
  - Product substitution issue [Unknown]
  - Therapeutic response decreased [Unknown]
  - Drug ineffective [Unknown]
